FAERS Safety Report 6468953-8 (Version None)
Quarter: 2009Q4

REPORT INFORMATION
  Report Type: 
  Country: None (occurrence: None)
  Receive Date: 20091203
  Receipt Date: 20080314
  Transmission Date: 20100525
  Serious: Yes (Hospitalization)
  Sender: FDA-Public Use
  Company Number: US-ELI_LILLY_AND_COMPANY-US200604004739

PATIENT
  Sex: Female
  Weight: 39.4 kg

DRUGS (4)
  1. SOMATROPIN [Suspect]
     Indication: TURNER'S SYNDROME
     Dosage: 2.8 MG, DAILY (1/D)
     Route: 058
     Dates: start: 20000904
  2. SOMATROPIN [Suspect]
     Dosage: 0.5 MG, DAILY (1/D)
  3. ESTROGENS CONJUGATED [Concomitant]
     Indication: OVARIAN FAILURE
  4. ADVIL [Concomitant]
     Dosage: UNK, AS NEEDED

REACTIONS (3)
  - ARTHRITIS BACTERIAL [None]
  - STAPHYLOCOCCAL OSTEOMYELITIS [None]
  - STAPHYLOCOCCAL SEPSIS [None]
